FAERS Safety Report 5961640-1 (Version None)
Quarter: 2008Q4

REPORT INFORMATION
  Report Type: 
  Country: None (occurrence: None)
  Receive Date: 20081119
  Receipt Date: 20081111
  Transmission Date: 20090506
  Serious: Yes (Disabling)
  Sender: FDA-Public Use
  Company Number: 2008-186733-NL

PATIENT

DRUGS (1)
  1. DEXAMETHASONE [Suspect]
     Indication: WEAN FROM VENTILATOR
     Dosage: 0.25 MG/KG

REACTIONS (6)
  - ABNORMAL BEHAVIOUR [None]
  - BLOOD CORTISOL DECREASED [None]
  - BLOOD THYROID STIMULATING HORMONE DECREASED [None]
  - NEURODEVELOPMENTAL DISORDER [None]
  - REVERSE TRI-IODOTHYRONINE INCREASED [None]
  - TRI-IODOTHYRONINE DECREASED [None]
